FAERS Safety Report 12126571 (Version 8)
Quarter: 2016Q2

REPORT INFORMATION
  Report Type: Spontaneous
  Country: JP (occurrence: JP)
  Receive Date: 20160229
  Receipt Date: 20160420
  Transmission Date: 20160815
  Serious: Yes (Death, Other)
  Sender: FDA-Public Use
  Company Number: JP-OTSUKA-2016_004932

PATIENT
  Age: 66 Year
  Sex: Female

DRUGS (8)
  1. ABILIFY MAINTENA [Suspect]
     Active Substance: ARIPIPRAZOLE
     Indication: SCHIZOPHRENIA
     Dosage: UNK UNK, QD
     Route: 030
     Dates: start: 20151110, end: 20160203
  2. AMANTADINE [Concomitant]
     Active Substance: AMANTADINE
     Dosage: 200 MG, QD
     Route: 048
     Dates: start: 20160116
  3. LANDSEN [Concomitant]
     Active Substance: CLONAZEPAM
     Indication: PRODUCT USED FOR UNKNOWN INDICATION
     Dosage: 1.5 MG, QD
     Route: 048
     Dates: start: 20151110, end: 20160216
  4. ABILIFY [Concomitant]
     Active Substance: ARIPIPRAZOLE
     Indication: SCHIZOPHRENIA
     Route: 048
  5. ESTAZOLAM. [Concomitant]
     Active Substance: ESTAZOLAM
     Indication: PRODUCT USED FOR UNKNOWN INDICATION
     Dosage: 2 (UNIT UNKNOWN), QD
     Route: 048
     Dates: start: 20151110, end: 20160216
  6. SHINLUCK [Concomitant]
     Active Substance: SODIUM PICOSULFATE
     Indication: PRODUCT USED FOR UNKNOWN INDICATION
     Dosage: UNK
     Route: 065
  7. AMANTADINE [Concomitant]
     Active Substance: AMANTADINE
     Indication: PRODUCT USED FOR UNKNOWN INDICATION
     Dosage: 50 MG, QD
     Route: 048
     Dates: end: 20160216
  8. VEGETAMIN A [Concomitant]
     Active Substance: CHLORPROMAZINE HYDROCHLORIDE\PHENOBARBITAL\PROMETHAZINE
     Indication: PRODUCT USED FOR UNKNOWN INDICATION
     Dosage: UNK
     Route: 065

REACTIONS (14)
  - Oxygen saturation decreased [Unknown]
  - Seizure [Unknown]
  - Hyperhidrosis [Fatal]
  - Pneumonia [Unknown]
  - Blood creatine phosphokinase increased [Unknown]
  - Muscle rigidity [Fatal]
  - Abnormal behaviour [Unknown]
  - Hyperkinesia [Unknown]
  - Somnolence [Unknown]
  - Musculoskeletal stiffness [Unknown]
  - Dehydration [Unknown]
  - Insomnia [Unknown]
  - Cardio-respiratory arrest [Fatal]
  - Pneumonia aspiration [Fatal]

NARRATIVE: CASE EVENT DATE: 20160116
